FAERS Safety Report 4836821-0 (Version None)
Quarter: 2005Q4

REPORT INFORMATION
  Report Type: 
  Country: None (occurrence: None)
  Receive Date: 20051123
  Receipt Date: 20051114
  Transmission Date: 20060501
  Serious: Yes (Other)
  Sender: FDA-Public Use
  Company Number: GB-ABBOTT-05P-167-0317177-00

PATIENT
  Sex: Female
  Weight: 60 kg

DRUGS (2)
  1. ERYTHROMYCIN [Suspect]
     Indication: SKIN INFECTION
     Route: 048
     Dates: start: 20051006, end: 20051011
  2. ACETAMINOPHEN W/ CODEINE [Concomitant]
     Indication: HEADACHE
     Route: 048

REACTIONS (2)
  - DEPRESSION [None]
  - SUICIDAL IDEATION [None]
